FAERS Safety Report 11773817 (Version 4)
Quarter: 2016Q1

REPORT INFORMATION
  Report Type: Spontaneous
  Country: DE (occurrence: DE)
  Receive Date: 20151124
  Receipt Date: 20160325
  Transmission Date: 20160525
  Serious: Yes (Disabling, Other)
  Sender: FDA-Public Use
  Company Number: DE-BRISTOL-MYERS SQUIBB COMPANY-BMS-2015-079099

PATIENT
  Sex: Male

DRUGS (6)
  1. PEMBROLIZUMAB. [Suspect]
     Active Substance: PEMBROLIZUMAB
     Dosage: 1 DF, 50 UNIT NOS
     Route: 065
     Dates: start: 20150814
  2. PEMBROLIZUMAB. [Suspect]
     Active Substance: PEMBROLIZUMAB
     Indication: MALIGNANT MELANOMA
     Dosage: 2 MG, UNK
     Route: 042
     Dates: start: 201509, end: 201512
  3. PEMBROLIZUMAB. [Suspect]
     Active Substance: PEMBROLIZUMAB
     Dosage: 1 DF,100 UNIT NOS
     Route: 065
     Dates: start: 20150703
  4. PEMBROLIZUMAB. [Suspect]
     Active Substance: PEMBROLIZUMAB
     Dosage: 1 DF, 100 UNIT NOS
     Route: 065
     Dates: start: 20150724
  5. YERVOY [Suspect]
     Active Substance: IPILIMUMAB
     Indication: MALIGNANT MELANOMA
     Dosage: 1 MG, UNK
     Route: 042
     Dates: start: 201212, end: 201303
  6. PEMBROLIZUMAB. [Suspect]
     Active Substance: PEMBROLIZUMAB
     Dosage: 1 DF, 50 UNIT NOS
     Route: 065
     Dates: start: 20150904

REACTIONS (2)
  - Spinal compression fracture [Unknown]
  - Osteonecrosis [Not Recovered/Not Resolved]
